FAERS Safety Report 4352356-6 (Version None)
Quarter: 2004Q2

REPORT INFORMATION
  Report Type: 
  Country: None (occurrence: None)
  Receive Date: 20040427
  Receipt Date: 20030814
  Transmission Date: 20050107
  Serious: Yes (Hospitalization)
  Sender: FDA-Public Use
  Company Number: WAES 0308USA01594

PATIENT
  Age: 28 Year
  Sex: Female

DRUGS (2)
  1. SINGULAIR [Suspect]
     Indication: RHINITIS ALLERGIC
     Dosage: PO
     Route: 048
     Dates: start: 20030701, end: 20030701
  2. PREDNISONE [Concomitant]

REACTIONS (2)
  - ASTHENIA [None]
  - MYALGIA [None]
